FAERS Safety Report 4438049-5 (Version None)
Quarter: 2004Q3

REPORT INFORMATION
  Report Type: 
  Country: None (occurrence: None)
  Receive Date: 20040831
  Receipt Date: 20040512
  Transmission Date: 20050211
  Serious: No
  Sender: FDA-Public Use
  Company Number: US-GLAXOSMITHKLINE-A0510523A

PATIENT
  Age: 53 Year
  Sex: Male

DRUGS (11)
  1. WELLBUTRIN XL [Suspect]
     Indication: DEPRESSION
     Dosage: 150MG PER DAY
     Route: 048
     Dates: start: 20040508
  2. PLAVIX [Concomitant]
  3. LIPITOR [Concomitant]
  4. ASPIRIN [Concomitant]
  5. PLATIL [Concomitant]
  6. BEXTRA [Concomitant]
  7. TERAZOSIN HCL [Concomitant]
  8. ACEON [Concomitant]
  9. INDAPAMIDE [Concomitant]
  10. ACETAMINOPHEN [Concomitant]
  11. PROPOXYPHENE [Concomitant]

REACTIONS (1)
  - DIZZINESS [None]
